FAERS Safety Report 7153757-3 (Version None)
Quarter: 2010Q4

REPORT INFORMATION
  Report Type: 
  Country: None (occurrence: None)
  Receive Date: 20101213
  Receipt Date: 20100115
  Transmission Date: 20110411
  Serious: No
  Sender: FDA-Public Use
  Company Number: US-ABBOTT-10P-163-0620005-00

PATIENT

DRUGS (5)
  1. MERIDIA [Suspect]
     Indication: WEIGHT DECREASED
     Dates: start: 20081001, end: 20090401
  2. MERIDIA [Suspect]
     Dosage: ONCE IN A WHILE
     Dates: start: 20090401
  3. INHALERS [Concomitant]
     Indication: DYSPNOEA
     Dosage: AS NEEDED
     Dates: start: 20070101
  4. INHALERS [Concomitant]
     Indication: OEDEMA
  5. LASIX [Concomitant]
     Indication: OEDEMA
     Dosage: AS NEEDED
     Dates: start: 20080601

REACTIONS (1)
  - WEIGHT LOSS POOR [None]
